FAERS Safety Report 10562841 (Version 2)
Quarter: 2015Q1

REPORT INFORMATION
  Report Type: Report from Study
  Country: FR (occurrence: FR)
  Receive Date: 20141104
  Receipt Date: 20150226
  Transmission Date: 20150720
  Serious: Yes (Hospitalization)
  Sender: FDA-Public Use
  Company Number: FR-JNJFOC-20141019723

PATIENT
  Sex: Male
  Weight: 65 kg

DRUGS (5)
  1. CARDENSIEL [Concomitant]
     Active Substance: BISOPROLOL FUMARATE
     Route: 065
  2. XARELTO [Suspect]
     Active Substance: RIVAROXABAN
     Indication: THROMBOSIS PROPHYLAXIS
     Route: 048
     Dates: start: 20130802, end: 20140707
  3. XARELTO [Suspect]
     Active Substance: RIVAROXABAN
     Indication: ATRIAL FIBRILLATION
     Route: 048
     Dates: start: 20130802, end: 20140707
  4. XARELTO [Suspect]
     Active Substance: RIVAROXABAN
     Indication: CEREBROVASCULAR ACCIDENT PROPHYLAXIS
     Route: 048
     Dates: start: 20130802, end: 20140707
  5. CORDARONE [Concomitant]
     Active Substance: AMIODARONE HYDROCHLORIDE
     Route: 065

REACTIONS (9)
  - Infected neoplasm [Recovering/Resolving]
  - Abdominal pain [Recovering/Resolving]
  - Colon neoplasm [Recovering/Resolving]
  - Colectomy [Recovered/Resolved]
  - Laparotomy [Recovered/Resolved]
  - Phlebectomy [Recovered/Resolved]
  - Adenomatous polyposis coli [Not Recovered/Not Resolved]
  - Colonoscopy [Recovering/Resolving]
  - Endoscopy small intestine [Recovering/Resolving]

NARRATIVE: CASE EVENT DATE: 20140707
